FAERS Safety Report 18968936 (Version 1)
Quarter: 2021Q1

REPORT INFORMATION
  Report Type: Other
  Country: US (occurrence: US)
  Receive Date: 20210304
  Receipt Date: 20210304
  Transmission Date: 20210420
  Serious: Yes (Other)
  Sender: FDA-Public Use
  Company Number: US-ROCHE-2762557

PATIENT
  Age: 52 Year
  Sex: Male

DRUGS (8)
  1. AVASTIN [Suspect]
     Active Substance: BEVACIZUMAB
     Indication: MACULAR OEDEMA
     Route: 050
  2. AVASTIN [Suspect]
     Active Substance: BEVACIZUMAB
     Indication: RADIATION RETINOPATHY
  3. PALLADIUM [Concomitant]
     Active Substance: PALLADIUM
  4. EYLEA [Concomitant]
     Active Substance: AFLIBERCEPT
     Route: 050
  5. PREDNISONE. [Concomitant]
     Active Substance: PREDNISONE
  6. BETADINE (UNITED STATES) [Concomitant]
  7. AVASTIN [Suspect]
     Active Substance: BEVACIZUMAB
     Indication: RETINAL DETACHMENT
  8. AKTEN [Concomitant]
     Active Substance: LIDOCAINE HYDROCHLORIDE

REACTIONS (3)
  - Off label use [Unknown]
  - Rash morbilliform [Recovered/Resolved]
  - Intentional product use issue [Unknown]
